FAERS Safety Report 8383967-9 (Version None)
Quarter: 2012Q2

REPORT INFORMATION
  Report Type: 
  Country: None (occurrence: None)
  Receive Date: 20120524
  Receipt Date: 20120518
  Transmission Date: 20120825
  Serious: Yes (Hospitalization)
  Sender: FDA-Public Use
  Company Number: US-AMGEN-USASP2012031753

PATIENT
  Age: 60 Year
  Sex: Male

DRUGS (1)
  1. ENBREL [Suspect]
     Indication: MUSCULOSKELETAL PAIN
     Dosage: 50 MG, QWK
     Dates: start: 20110801

REACTIONS (1)
  - HIP ARTHROPLASTY [None]
